FAERS Safety Report 10074102 (Version 2)
Quarter: 2014Q2

REPORT INFORMATION
  Report Type: Spontaneous
  Country: JP (occurrence: JP)
  Receive Date: 20140411
  Receipt Date: 20140626
  Transmission Date: 20141212
  Serious: Yes (Death, Life-Threatening, Hospitalization)
  Sender: FDA-Public Use
  Company Number: JP-B.I. PHARMACEUTICALS,INC./RIDGEFIELD-2014-BI-16786NB

PATIENT
  Age: 89 Year
  Sex: Female
  Weight: 42 kg

DRUGS (10)
  1. PRAZAXA [Suspect]
     Indication: CEREBROVASCULAR ACCIDENT PROPHYLAXIS
     Dosage: 220 MG
     Route: 048
     Dates: start: 20131214, end: 20140405
  2. FERROSTEC [Concomitant]
     Dosage: 50 MG
     Route: 048
  3. EPINASTINE HYDROCHLORIDE [Concomitant]
     Dosage: 20 MG
     Route: 048
  4. BROMETON [Concomitant]
     Dosage: 0.25 MG
     Route: 048
  5. PURSENNID [Concomitant]
     Dosage: 12 MG
     Route: 048
  6. CLIMAGEN [Concomitant]
     Dosage: 20 MG
     Route: 048
  7. LASIX [Concomitant]
     Dosage: 60 MG
     Route: 048
  8. VERAPAMIL HYDROCHLORIDE [Concomitant]
     Dosage: 120 MG
     Route: 048
  9. MAINHEART [Concomitant]
     Dosage: 1.25 MG
     Route: 048
  10. PRODEC [Concomitant]
     Dosage: 100 MG
     Route: 048

REACTIONS (2)
  - Cardiac failure chronic [Fatal]
  - Upper gastrointestinal haemorrhage [Recovered/Resolved]
